FAERS Safety Report 5524103-3 (Version None)
Quarter: 2007Q4

REPORT INFORMATION
  Report Type: 
  Country: None (occurrence: None)
  Receive Date: 20071121
  Receipt Date: 20071116
  Transmission Date: 20080405
  Serious: Yes (Other)
  Sender: FDA-Public Use
  Company Number: US-ROXANE LABORATORIES, INC-2007-DE-06814GD

PATIENT
  Age: 33 Year
  Sex: Female

DRUGS (5)
  1. SERTRALINE [Suspect]
     Route: 048
  2. SUMATRIPTAN SUCCINATE [Suspect]
     Route: 048
  3. CITALOPRAM [Suspect]
     Route: 048
  4. MOCLOBEMIDE [Suspect]
     Route: 048
  5. THIORIDAZINE [Suspect]
     Route: 048

REACTIONS (12)
  - DISSEMINATED INTRAVASCULAR COAGULATION [None]
  - DYSPNOEA [None]
  - FATIGUE [None]
  - LOSS OF CONSCIOUSNESS [None]
  - MUSCLE RIGIDITY [None]
  - MYDRIASIS [None]
  - OVERDOSE [None]
  - PYREXIA [None]
  - RHABDOMYOLYSIS [None]
  - SEROTONIN SYNDROME [None]
  - TRISMUS [None]
  - VOMITING [None]
